FAERS Safety Report 4660978-8 (Version None)
Quarter: 2005Q2

REPORT INFORMATION
  Report Type: 
  Country: None (occurrence: None)
  Receive Date: 20050511
  Receipt Date: 20050504
  Transmission Date: 20051028
  Serious: Yes (Other)
  Sender: FDA-Public Use
  Company Number: 200511033BCC

PATIENT
  Age: 54 Year
  Sex: Male
  Weight: 93.8946 kg

DRUGS (3)
  1. MILK OF MAGNESIA [Suspect]
     Indication: ANAL FISSURE
     Dosage: 30 ML QD ORAL; 15 ML HS ORAL
     Route: 048
     Dates: start: 20041101
  2. MILK OF MAGNESIA [Suspect]
     Indication: ANAL FISSURE
     Dosage: 30 ML QD ORAL; 15 ML HS ORAL
     Route: 048
     Dates: start: 20050318
  3. DIOVAN [Concomitant]

REACTIONS (1)
  - NEPHROLITHIASIS [None]
